FAERS Safety Report 8008292-7 (Version None)
Quarter: 2011Q4

REPORT INFORMATION
  Report Type: 
  Country: None (occurrence: None)
  Receive Date: 20111227
  Receipt Date: 20111220
  Transmission Date: 20120403
  Serious: Yes (Other)
  Sender: FDA-Public Use
  Company Number: US-ASTRAZENECA-2011SE70311

PATIENT
  Age: 40 Year
  Sex: Male
  Weight: 74.8 kg

DRUGS (10)
  1. SEROQUEL [Suspect]
     Indication: BIPOLAR DISORDER
     Dosage: 50 MG IN AM, 200 MG IN THE EVENING, 250 TOTAL DAILY DOSE
     Route: 048
     Dates: start: 20110901
  2. SEROQUEL [Suspect]
     Route: 048
     Dates: start: 20110901, end: 20111001
  3. FLEXERIL [Concomitant]
     Indication: MUSCLE RELAXANT THERAPY
  4. CALRITIN [Concomitant]
     Indication: MULTIPLE ALLERGIES
  5. SEROQUEL [Suspect]
     Route: 048
     Dates: start: 20110901, end: 20111001
  6. FLEXERIL [Concomitant]
  7. CRONABINON [Concomitant]
  8. IBUPROFEN [Concomitant]
  9. SEROQUEL [Suspect]
     Indication: ANXIETY
     Dosage: 50 MG IN AM, 200 MG IN THE EVENING, 250 TOTAL DAILY DOSE
     Route: 048
     Dates: start: 20110901
  10. VICODIN [Concomitant]
     Indication: NECK PAIN

REACTIONS (4)
  - NECK PAIN [None]
  - ORAL DISORDER [None]
  - DYSKINESIA [None]
  - GINGIVAL DISORDER [None]
